FAERS Safety Report 18168861 (Version 1)
Quarter: 2020Q3

REPORT INFORMATION
  Report Type: Spontaneous
  Country: US (occurrence: US)
  Receive Date: 20200819
  Receipt Date: 20200819
  Transmission Date: 20201103
  Serious: No
  Sender: FDA-Public Use
  Company Number: US-PFIZER INC-2020317244

PATIENT
  Age: 85 Year
  Sex: Female
  Weight: 64.41 kg

DRUGS (1)
  1. VYNDAMAX [Suspect]
     Active Substance: TAFAMIDIS
     Indication: AMYLOIDOSIS
     Dosage: 1 DF, 1X/DAY
     Route: 048
     Dates: start: 2020

REACTIONS (4)
  - Body height decreased [Unknown]
  - Product use in unapproved indication [Unknown]
  - Weight fluctuation [Unknown]
  - Off label use [Unknown]

NARRATIVE: CASE EVENT DATE: 2020
